FAERS Safety Report 20219145 (Version 1)
Quarter: 2021Q4

REPORT INFORMATION
  Report Type: Report from Study
  Country: CO (occurrence: CO)
  Receive Date: 20211222
  Receipt Date: 20211222
  Transmission Date: 20220303
  Serious: Yes (Hospitalization)
  Sender: FDA-Public Use
  Company Number: CO-BRISTOL-MYERS SQUIBB COMPANY-BMS-2021-139370

PATIENT
  Age: 59 Year
  Sex: Female
  Weight: 95 kg

DRUGS (1)
  1. ABATACEPT [Suspect]
     Active Substance: ABATACEPT
     Indication: Rheumatoid arthritis
     Dosage: 750 MILLIGRAM, Q4WK
     Route: 042
     Dates: start: 20210202

REACTIONS (3)
  - Macule [Recovering/Resolving]
  - Pruritus [Unknown]
  - Pain [Unknown]

NARRATIVE: CASE EVENT DATE: 20211210
